FAERS Safety Report 9305320 (Version 2)
Quarter: 2013Q2

REPORT INFORMATION
  Report Type: Spontaneous
  Country: JP (occurrence: None)
  Receive Date: 20130520
  Receipt Date: 20130611
  Transmission Date: 20140414
  Serious: Yes (Other)
  Sender: FDA-Public Use
  Company Number: TCI2013A02642

PATIENT
  Sex: 0

DRUGS (1)
  1. TAKEPRON OD [Suspect]
     Dosage: (15 MG, 1 IN 1 D)
     Route: 048

REACTIONS (3)
  - Ileus [None]
  - Condition aggravated [None]
  - Gastrointestinal hypomotility [None]
